FAERS Safety Report 22019790 (Version 1)
Quarter: 2023Q1

REPORT INFORMATION
  Report Type: Spontaneous
  Country: GB (occurrence: GB)
  Receive Date: 20230222
  Receipt Date: 20230222
  Transmission Date: 20230417
  Serious: Yes (Hospitalization, Other)
  Sender: FDA-Public Use
  Company Number: GB-AUCTA-000002

PATIENT
  Age: 18 Year
  Sex: Male

DRUGS (1)
  1. DEFERASIROX [Suspect]
     Active Substance: DEFERASIROX
     Indication: Chelation therapy
     Dosage: FOR OVER 5 YEARS
     Route: 065

REACTIONS (7)
  - Gastric ulcer perforation [Unknown]
  - Supraventricular tachycardia [Unknown]
  - Pneumoperitoneum [Unknown]
  - Ascites [Unknown]
  - COVID-19 pneumonia [Unknown]
  - Hepatosplenomegaly [Unknown]
  - Deep vein thrombosis [Unknown]
